FAERS Safety Report 8767095 (Version 1)
Quarter: 2012Q4

REPORT INFORMATION
  Report Type: 
  Country: US (occurrence: US)
  Receive Date: 20120831
  Receipt Date: 20120831
  Transmission Date: 20130627
  Serious: Yes (Other)
  Sender: FDA-Public Use
  Company Number: US-ELI_LILLY_AND_COMPANY-US201208008013

PATIENT
  Sex: Female

DRUGS (4)
  1. CYMBALTA [Suspect]
     Indication: DEPRESSION
  2. STRATTERA [Suspect]
     Indication: DEPRESSION
  3. GEODON [Concomitant]
  4. ADDERALL [Concomitant]

REACTIONS (2)
  - Cyst [Unknown]
  - Off label use [Unknown]
